FAERS Safety Report 6901482-3 (Version None)
Quarter: 2010Q3

REPORT INFORMATION
  Report Type: 
  Country: None (occurrence: None)
  Receive Date: 20100803
  Receipt Date: 20080505
  Transmission Date: 20110219
  Serious: Yes (Other)
  Sender: FDA-Public Use
  Company Number: US-PFIZER INC-2008006086

PATIENT
  Sex: Female
  Weight: 81.6 kg

DRUGS (14)
  1. LYRICA [Suspect]
     Indication: NEUROPATHY PERIPHERAL
     Route: 048
     Dates: start: 20071217, end: 20071224
  2. ADVAIR DISKUS 100/50 [Concomitant]
  3. LASIX [Concomitant]
  4. GLUCOPHAGE [Concomitant]
  5. CELEXA [Concomitant]
  6. PRAVACHOL [Concomitant]
  7. LIBRIUM [Concomitant]
  8. BENICAR [Concomitant]
  9. TRICOR [Concomitant]
  10. PROTONIX [Concomitant]
  11. COLCHICINE [Concomitant]
  12. MECLIZINE [Concomitant]
  13. ESTRACE [Concomitant]
  14. IBANDRONATE SODIUM [Concomitant]

REACTIONS (7)
  - ASTHENIA [None]
  - BALANCE DISORDER [None]
  - CONFUSIONAL STATE [None]
  - DISORIENTATION [None]
  - FALL [None]
  - HALLUCINATION [None]
  - URINARY INCONTINENCE [None]
